FAERS Safety Report 4994543-X (Version None)
Quarter: 2006Q2

REPORT INFORMATION
  Report Type: 
  Country: None (occurrence: None)
  Receive Date: 20060505
  Receipt Date: 20050823
  Transmission Date: 20061013
  Serious: Yes (Hospitalization, Disabling)
  Sender: FDA-Public Use
  Company Number: US-MERCK-0508USA03914

PATIENT
  Age: 64 Year
  Sex: Female
  Weight: 60 kg

DRUGS (7)
  1. VIOXX [Suspect]
     Indication: PAIN IN EXTREMITY
     Route: 048
     Dates: start: 20011127, end: 20040930
  2. VIOXX [Suspect]
     Indication: PROCEDURAL PAIN
     Route: 048
     Dates: start: 20011127, end: 20040930
  3. ADALAT [Concomitant]
     Indication: BLOOD PRESSURE
     Route: 065
  4. MONOPRIL [Concomitant]
     Indication: HYPERTENSION
     Route: 065
     Dates: start: 20010901
  5. VIVELLE [Concomitant]
     Indication: HORMONE REPLACEMENT THERAPY
     Route: 065
     Dates: start: 20010721, end: 20041101
  6. CYANOCOBALAMIN [Concomitant]
     Indication: ENERGY INCREASED
     Route: 065
  7. PLAVIX [Concomitant]
     Indication: HYPERTENSION
     Route: 065

REACTIONS (17)
  - ABDOMINAL DISCOMFORT [None]
  - ADVERSE EVENT [None]
  - ARTHROSCOPY [None]
  - ASPIRATION [None]
  - BLOOD CHOLESTEROL INCREASED [None]
  - BREAST MASS [None]
  - CEREBROVASCULAR ACCIDENT [None]
  - CHEST PAIN [None]
  - HYPERTENSION [None]
  - INJURY [None]
  - LENS IMPLANT [None]
  - LUNG NEOPLASM [None]
  - LYMPHOEDEMA [None]
  - NON-CARDIAC CHEST PAIN [None]
  - OEDEMA PERIPHERAL [None]
  - PAIN IN EXTREMITY [None]
  - TRANSIENT ISCHAEMIC ATTACK [None]
